FAERS Safety Report 19854230 (Version 3)
Quarter: 2023Q4

REPORT INFORMATION
  Report Type: Spontaneous
  Country: US (occurrence: US)
  Receive Date: 20210920
  Receipt Date: 20231101
  Transmission Date: 20240109
  Serious: Yes (Other)
  Sender: FDA-Public Use
  Company Number: US-JNJFOC-20210926218

PATIENT
  Age: 20 Year
  Sex: Female

DRUGS (36)
  1. ELMIRON [Suspect]
     Active Substance: PENTOSAN POLYSULFATE SODIUM
     Indication: Cystitis interstitial
     Route: 048
     Dates: start: 20090729, end: 20150113
  2. PREDNISONE [Concomitant]
     Active Substance: PREDNISONE
     Indication: Multiple allergies
     Route: 065
     Dates: start: 20050912, end: 20200601
  3. AZITHROMYCIN [Concomitant]
     Active Substance: AZITHROMYCIN
     Indication: Bacterial infection
     Route: 065
     Dates: start: 20060228, end: 20201119
  4. LIDODERM [Concomitant]
     Active Substance: LIDOCAINE
     Indication: Analgesic therapy
     Route: 065
     Dates: start: 20071009, end: 20150527
  5. SPRINTEC [Concomitant]
     Active Substance: ETHINYL ESTRADIOL\NORGESTIMATE
     Indication: Contraception
     Route: 065
     Dates: start: 20071109, end: 20090123
  6. YAZ [Concomitant]
     Active Substance: DROSPIRENONE\ETHINYL ESTRADIOL
     Indication: Contraception
     Route: 065
     Dates: start: 20080228, end: 20080520
  7. FEXOFENADINE [Concomitant]
     Active Substance: FEXOFENADINE HYDROCHLORIDE
     Indication: Multiple allergies
     Route: 065
     Dates: start: 20080617, end: 20111014
  8. CIPROFLOXACIN [Concomitant]
     Active Substance: CIPROFLOXACIN
     Indication: Bacterial infection
     Route: 065
     Dates: start: 20080922, end: 20141010
  9. ACETAMINOPHEN\HYDROCODONE [Concomitant]
     Active Substance: ACETAMINOPHEN\HYDROCODONE
     Indication: Analgesic therapy
     Route: 065
     Dates: start: 20081112, end: 20201015
  10. LYRICA [Concomitant]
     Active Substance: PREGABALIN
     Indication: Neuralgia
     Route: 065
     Dates: start: 20090109, end: 20150204
  11. METHYLPREDNISOLONE [Concomitant]
     Active Substance: METHYLPREDNISOLONE
     Indication: Hormone replacement therapy
     Route: 065
     Dates: start: 20090109, end: 20200703
  12. DIAZEPAM [Concomitant]
     Active Substance: DIAZEPAM
     Indication: Anxiety
     Route: 065
     Dates: start: 20090220, end: 20151121
  13. SKELAXIN [Concomitant]
     Active Substance: METAXALONE
     Indication: Muscle relaxant therapy
     Route: 065
     Dates: start: 20090317, end: 20100213
  14. HYDROCODONE BITARTRATE AND ACETAMINOPHEN [Concomitant]
     Active Substance: ACETAMINOPHEN\HYDROCODONE BITARTRATE
     Indication: Analgesic therapy
     Route: 065
     Dates: start: 20090418, end: 20111028
  15. TRI-SPRINTEC [Concomitant]
     Active Substance: ETHINYL ESTRADIOL\NORGESTIMATE
     Indication: Contraception
     Route: 065
     Dates: start: 20090423, end: 20100224
  16. LIDOCAINE [Concomitant]
     Active Substance: LIDOCAINE
     Indication: Analgesic therapy
     Route: 065
     Dates: start: 20090602, end: 20141126
  17. HALOG [Concomitant]
     Active Substance: HALCINONIDE
     Indication: Pruritus
     Route: 065
     Dates: start: 20091010, end: 20110510
  18. FLUTICASONE [Concomitant]
     Active Substance: FLUTICASONE
     Indication: Multiple allergies
     Route: 065
     Dates: start: 20100305, end: 20151113
  19. TRIVORA [Concomitant]
     Active Substance: ETHINYL ESTRADIOL\LEVONORGESTREL
     Indication: Contraception
     Route: 065
     Dates: start: 20100324, end: 20110615
  20. PHENAZOPYRIDINE [Concomitant]
     Active Substance: PHENAZOPYRIDINE
     Indication: Analgesic therapy
     Route: 065
     Dates: start: 20100410, end: 20170912
  21. NITROFURANTOIN [Concomitant]
     Active Substance: NITROFURANTOIN
     Indication: Bacterial infection
     Route: 065
     Dates: start: 20100411, end: 20200925
  22. METAXALONE [Concomitant]
     Active Substance: METAXALONE
     Indication: Muscle relaxant therapy
     Route: 065
     Dates: start: 20100514, end: 20110615
  23. CLINDAMYCIN [Concomitant]
     Active Substance: CLINDAMYCIN
     Indication: Bacterial vaginosis
     Route: 065
     Dates: start: 20100519, end: 20200618
  24. DESOXIMETASONE [Concomitant]
     Active Substance: DESOXIMETASONE
     Indication: Swelling
     Route: 065
     Dates: start: 20101222, end: 20110525
  25. OMEPRAZOLE [Concomitant]
     Active Substance: OMEPRAZOLE
     Indication: Gastrooesophageal reflux disease
     Route: 065
     Dates: start: 20110404, end: 20200925
  26. LEVONORGESTREL [Concomitant]
     Active Substance: LEVONORGESTREL
     Indication: Contraception
     Route: 065
     Dates: start: 20110803, end: 20150506
  27. DOXYCYCLINE [Concomitant]
     Active Substance: DOXYCYCLINE
     Indication: Bacterial infection
     Route: 065
     Dates: start: 20111003, end: 20200211
  28. HYDROXYZINE [Concomitant]
     Active Substance: HYDROXYZINE HYDROCHLORIDE
     Indication: Anxiety
     Route: 065
     Dates: start: 20121010, end: 20150414
  29. APRISO [Concomitant]
     Active Substance: MESALAMINE
     Indication: Colitis ulcerative
     Route: 065
     Dates: start: 20120907, end: 20151231
  30. OXYCONTIN [Concomitant]
     Active Substance: OXYCODONE HYDROCHLORIDE
     Indication: Analgesic therapy
     Route: 065
     Dates: start: 20121115, end: 20140213
  31. DASETTA 7/7/7 [Concomitant]
     Active Substance: ETHINYL ESTRADIOL\NORETHINDRONE
     Indication: Contraception
     Route: 065
     Dates: start: 20130121, end: 20150810
  32. CYCLOBENZAPRINE [Concomitant]
     Active Substance: CYCLOBENZAPRINE
     Indication: Muscle relaxant therapy
     Route: 065
     Dates: start: 20130206
  33. MORPHINE [Concomitant]
     Active Substance: MORPHINE
     Indication: Analgesic therapy
     Route: 065
     Dates: start: 20130225, end: 20130507
  34. OXYCODONE AND ACETAMINOPHEN [Concomitant]
     Active Substance: ACETAMINOPHEN\OXYCODONE HYDROCHLORIDE
     Indication: Analgesic therapy
     Route: 065
     Dates: start: 20130311, end: 20170706
  35. DULOXETINE [Concomitant]
     Active Substance: DULOXETINE
     Indication: Depression
     Route: 065
     Dates: start: 20140103, end: 20180914
  36. AMITRIPTYLINE [Concomitant]
     Active Substance: AMITRIPTYLINE
     Indication: Depression
     Route: 065
     Dates: start: 20140131, end: 20150629

REACTIONS (4)
  - Dry age-related macular degeneration [Not Recovered/Not Resolved]
  - Maculopathy [Not Recovered/Not Resolved]
  - Off label use [Unknown]
  - Product use issue [Unknown]

NARRATIVE: CASE EVENT DATE: 20090729
